FAERS Safety Report 7332576-9 (Version None)
Quarter: 2011Q1

REPORT INFORMATION
  Report Type: 
  Country: None (occurrence: None)
  Receive Date: 20110304
  Receipt Date: 20110222
  Transmission Date: 20110831
  Serious: Yes (Hospitalization)
  Sender: FDA-Public Use
  Company Number: PHHY2010US11975

PATIENT
  Sex: Female
  Weight: 97 kg

DRUGS (12)
  1. EXJADE [Suspect]
     Indication: FATIGUE
  2. EXJADE [Suspect]
     Indication: IRON OVERLOAD
     Dosage: 1000 MG, UNK
  3. LEXAPRO [Concomitant]
  4. SPIRIVA [Concomitant]
  5. QVAR 40 [Concomitant]
  6. INDOMETHACIN [Concomitant]
     Indication: ARTHRITIS
     Dosage: UNK
  7. DICLOFENAC [Concomitant]
     Dosage: UNK
  8. CALCIUM W/VITAMIN D NOS [Concomitant]
     Indication: BONE DISORDER
  9. EXJADE [Suspect]
     Indication: MALAISE
  10. PROAIR HFA [Concomitant]
  11. EXJADE [Suspect]
     Indication: ACUTE MYELOID LEUKAEMIA
     Dosage: 500 MG, QID
     Route: 048
     Dates: start: 20100106, end: 20100222
  12. OMEPRAZOLE [Concomitant]

REACTIONS (5)
  - PNEUMONIA [None]
  - MALAISE [None]
  - DYSPNOEA [None]
  - GASTROINTESTINAL HAEMORRHAGE [None]
  - VOMITING [None]
